FAERS Safety Report 11214065 (Version 1)
Quarter: 2015Q2

REPORT INFORMATION
  Report Type: Spontaneous
  Country: US (occurrence: US)
  Receive Date: 20150623
  Receipt Date: 20150623
  Transmission Date: 20150821
  Serious: Yes (Other)
  Sender: FDA-Public Use
  Company Number: US-ALLERGAN-1511559US

PATIENT
  Age: 47 Year
  Sex: Male

DRUGS (1)
  1. BOTOX [Suspect]
     Active Substance: ONABOTULINUMTOXINA
     Indication: MIGRAINE
     Dosage: UNK, SINGLE, EVERY THREE MONTHS FOR LAST FOUR YEARS
     Route: 030

REACTIONS (8)
  - Cerebrovascular accident [Unknown]
  - Paralysis [Unknown]
  - Injection site bruising [Unknown]
  - Facial paresis [Unknown]
  - Speech disorder [Unknown]
  - Drug ineffective [Unknown]
  - Transient ischaemic attack [Unknown]
  - Gait disturbance [Unknown]
